FAERS Safety Report 5393722-X (Version None)
Quarter: 2007Q3

REPORT INFORMATION
  Report Type: 
  Country: None (occurrence: None)
  Receive Date: 20070723
  Receipt Date: 20070613
  Transmission Date: 20080115
  Serious: Yes (Hospitalization, Other)
  Sender: FDA-Public Use
  Company Number: US-PURDUE-USA_2007_0028035

PATIENT
  Sex: Male
  Weight: 77 kg

DRUGS (5)
  1. OXYCONTIN [Suspect]
     Indication: BACK PAIN
     Dosage: UNK, SEE TEXT
     Dates: start: 19950101, end: 19990101
  2. PERCOCET [Concomitant]
     Indication: BREAKTHROUGH PAIN
     Dosage: 5 MG, UNK
  3. SOMA [Concomitant]
     Indication: MUSCLE DISORDER
     Dosage: 350 MG, UNK
  4. ANTIDEPRESSANTS [Concomitant]
     Indication: DEPRESSION
  5. OTHER ANALGESICS AND ANTIPYRETICS [Concomitant]
     Indication: BREAKTHROUGH PAIN

REACTIONS (15)
  - BACK PAIN [None]
  - DIARRHOEA [None]
  - DRUG REHABILITATION [None]
  - DRUG TOLERANCE [None]
  - DRUG WITHDRAWAL SYNDROME [None]
  - EMOTIONAL DISTRESS [None]
  - FALL [None]
  - FATIGUE [None]
  - HEADACHE [None]
  - MEMORY IMPAIRMENT [None]
  - NAUSEA [None]
  - NECK PAIN [None]
  - PAIN [None]
  - PALPITATIONS [None]
  - TREMOR [None]
